FAERS Safety Report 22373504 (Version 1)
Quarter: 2023Q2

REPORT INFORMATION
  Report Type: Report from Study
  Country: US (occurrence: US)
  Receive Date: 20230526
  Receipt Date: 20230526
  Transmission Date: 20230722
  Serious: Yes (Hospitalization, Other)
  Sender: FDA-Public Use
  Company Number: US-JNJFOC-20230540160

PATIENT
  Age: 43 Year
  Sex: Female

DRUGS (3)
  1. SPRAVATO [Suspect]
     Active Substance: ESKETAMINE
     Indication: Depression
     Dosage: ^56 MG, 2 TOTAL DOSES^?ALSO MENTIONED AS BELIEVES FIRST TREATMENT WAS AT END OF MARCH
     Dates: start: 20230410, end: 20230413
  2. SPRAVATO [Suspect]
     Active Substance: ESKETAMINE
     Dosage: ^84 MG, 1 TOTAL DOSE^
     Dates: start: 20230417, end: 20230417
  3. SPRAVATO [Suspect]
     Active Substance: ESKETAMINE
     Dates: start: 20230424, end: 20230424

REACTIONS (4)
  - Acute kidney injury [Recovering/Resolving]
  - Hepatic failure [Recovering/Resolving]
  - Nephrolithiasis [Recovering/Resolving]
  - Hypotension [Not Recovered/Not Resolved]

NARRATIVE: CASE EVENT DATE: 20230401
